FAERS Safety Report 24798172 (Version 2)
Quarter: 2025Q1

REPORT INFORMATION
  Report Type: Spontaneous
  Country: US (occurrence: US)
  Receive Date: 20250102
  Receipt Date: 20250109
  Transmission Date: 20250408
  Serious: No
  Sender: ROCHE
  Company Number: US-ROCHE-10000170727

PATIENT
  Age: 4 Year
  Sex: Male
  Weight: 25.1 kg

DRUGS (1)
  1. HEMLIBRA [Suspect]
     Active Substance: EMICIZUMAB-KXWH
     Indication: Factor VIII deficiency
     Dosage: STRENGTH: 60MG/0.4ML.
     Route: 058
     Dates: start: 202208

REACTIONS (9)
  - Tremor [Recovered/Resolved]
  - Chills [Recovered/Resolved]
  - Limb injury [Unknown]
  - Malaise [Unknown]
  - Pain in extremity [Unknown]
  - Headache [Unknown]
  - Head injury [Unknown]
  - Gait disturbance [Unknown]
  - Fall [Unknown]

NARRATIVE: CASE EVENT DATE: 20241222
